FAERS Safety Report 17279122 (Version 2)
Quarter: 2020Q1

REPORT INFORMATION
  Report Type: Spontaneous
  Country: US (occurrence: US)
  Receive Date: 20200116
  Receipt Date: 20200310
  Transmission Date: 20200409
  Serious: Yes (Death, Hospitalization, Other)
  Sender: FDA-Public Use
  Company Number: US-PFIZER INC-2019404080

PATIENT
  Age: 71 Year
  Sex: Female
  Weight: 131.52 kg

DRUGS (4)
  1. RALOXIFENE. [Concomitant]
     Active Substance: RALOXIFENE
     Dosage: UNK
  2. CLOPIDOGREL [Concomitant]
     Active Substance: CLOPIDOGREL BISULFATE
     Dosage: UNK
  3. VALSARTAN. [Concomitant]
     Active Substance: VALSARTAN
     Dosage: UNK
  4. TALZENNA [Suspect]
     Active Substance: TALAZOPARIB TOSYLATE
     Indication: LUNG SQUAMOUS CELL CARCINOMA STAGE III
     Dosage: 1 MG, 1X/DAY
     Dates: start: 2019, end: 201912

REACTIONS (9)
  - Product use in unapproved indication [Unknown]
  - Pain [Unknown]
  - Dyspnoea [Unknown]
  - Loss of consciousness [Unknown]
  - Decreased appetite [Unknown]
  - Nasopharyngitis [Unknown]
  - Off label use [Unknown]
  - Death [Fatal]
  - Neoplasm progression [Unknown]

NARRATIVE: CASE EVENT DATE: 20200115
